FAERS Safety Report 15075353 (Version 2)
Quarter: 2022Q4

REPORT INFORMATION
  Report Type: Spontaneous
  Country: US (occurrence: US)
  Receive Date: 20180627
  Receipt Date: 20221011
  Transmission Date: 20230113
  Serious: Yes (Hospitalization)
  Sender: FDA-Public Use
  Company Number: US-SAOL THERAPEUTICS-2018SAO00399

PATIENT
  Age: 32 Year
  Sex: Male

DRUGS (1)
  1. LIORESAL [Suspect]
     Active Substance: BACLOFEN
     Indication: Muscle spasticity
     Dosage: 1239 ?G, \DAY
     Route: 037

REACTIONS (8)
  - Drug withdrawal syndrome [Unknown]
  - Overdose [Unknown]
  - Sedation [Unknown]
  - Depressed level of consciousness [Unknown]
  - Hypotonia [Unknown]
  - Nausea [Unknown]
  - Hypertonia [Unknown]
  - Device issue [Recovered/Resolved]

NARRATIVE: CASE EVENT DATE: 20171201
